FAERS Safety Report 8465177-X (Version None)
Quarter: 2012Q2

REPORT INFORMATION
  Report Type: 
  Country: None (occurrence: None)
  Receive Date: 20120626
  Receipt Date: 20120620
  Transmission Date: 20120825
  Serious: Yes (Other)
  Sender: FDA-Public Use
  Company Number: PHHY2012BR053542

PATIENT
  Sex: Male

DRUGS (1)
  1. RITALIN LA [Suspect]

REACTIONS (2)
  - AUTISM [None]
  - DEVELOPMENTAL DELAY [None]
